FAERS Safety Report 9243035 (Version 2)
Quarter: 2013Q2

REPORT INFORMATION
  Report Type: Spontaneous
  Country: US (occurrence: US)
  Receive Date: 20130419
  Receipt Date: 20130516
  Transmission Date: 20140414
  Serious: Yes (Hospitalization)
  Sender: FDA-Public Use
  Company Number: US-009507513-1304USA005270

PATIENT
  Age: 70 Year
  Sex: Male

DRUGS (4)
  1. TEMODAR [Suspect]
     Indication: ASTROCYTOMA MALIGNANT
     Dosage: 150 MG, QD
     Route: 048
  2. LEVETIRACETAM [Concomitant]
  3. DEXAMETHASONE [Concomitant]
  4. SIMVASTATIN TABLETS, USP [Concomitant]

REACTIONS (1)
  - Drug-induced liver injury [Recovering/Resolving]
